FAERS Safety Report 6681684-4 (Version None)
Quarter: 2010Q2

REPORT INFORMATION
  Report Type: 
  Country: None (occurrence: None)
  Receive Date: 20100412
  Receipt Date: 20100326
  Transmission Date: 20101027
  Serious: Yes (Other)
  Sender: FDA-Public Use
  Company Number: 2010SCPR000476

PATIENT
  Age: 31 Year
  Sex: Female

DRUGS (10)
  1. IBUPROFEN [Suspect]
     Indication: DRUG USE FOR UNKNOWN INDICATION
     Dosage: 400 MG
     Dates: end: 20091215
  2. YASMIN [Suspect]
     Indication: DRUG USE FOR UNKNOWN INDICATION
     Dosage: ORAL
     Route: 048
     Dates: start: 20091018, end: 20091215
  3. ACETAMINOPHEN [Suspect]
     Indication: DRUG USE FOR UNKNOWN INDICATION
     Dates: end: 20091215
  4. TOBRADEX [Suspect]
     Indication: KERATITIS
     Dates: start: 20091210, end: 20091230
  5. TOBRAFEN (DICLOFENAC SODIUM, TOBRAMYCIN) UNKNOWN [Suspect]
     Indication: KERATITIS
     Dates: start: 20091210, end: 20091230
  6. METOCLOPRAMIDE [Suspect]
     Indication: DRUG USE FOR UNKNOWN INDICATION
  7. HEXAMIDINE ISETIONATE (KEXAMIDINE ISETIONATE) UNKNOWN [Suspect]
     Indication: KERATITIS
     Dates: start: 20091210, end: 20091230
  8. FUSIDIC ACID [Suspect]
     Indication: KERATITIS
     Dates: start: 20091210, end: 20091230
  9. LACRINORM (CARBOMER) UNKNOWN [Suspect]
     Indication: KERATITIS
     Dates: start: 20091210, end: 20091230
  10. LACRYOCON (HYALURONATE SODIUM, POLYACRYLATE SODIUM) [Suspect]
     Indication: KERATITIS

REACTIONS (2)
  - DRUG EXPOSURE DURING PREGNANCY [None]
  - PREGNANCY [None]
